FAERS Safety Report 7028735-5 (Version None)
Quarter: 2010Q4

REPORT INFORMATION
  Report Type: 
  Country: None (occurrence: None)
  Receive Date: 20101004
  Receipt Date: 20101004
  Transmission Date: 20110411
  Serious: No
  Sender: FDA-Public Use
  Company Number: None

PATIENT
  Age: 41 Year
  Sex: Female
  Weight: 58.0604 kg

DRUGS (1)
  1. MAGNEVIST [Suspect]
     Dosage: 20CC ONCE IV
     Route: 042
     Dates: start: 20100928, end: 20100928

REACTIONS (1)
  - URTICARIA [None]
